FAERS Safety Report 21109895 (Version 1)
Quarter: 2022Q3

REPORT INFORMATION
  Report Type: Report from Study
  Country: US (occurrence: US)
  Receive Date: 20220721
  Receipt Date: 20220721
  Transmission Date: 20221027
  Serious: Yes (Hospitalization)
  Sender: FDA-Public Use
  Company Number: US-JNJFOC-20220732454

PATIENT
  Age: 74 Year
  Sex: Male
  Weight: 81.8 kg

DRUGS (15)
  1. DARATUMUMAB [Suspect]
     Active Substance: DARATUMUMAB
     Indication: Primary amyloidosis
     Dosage: LAST DOSE PRIOR TO EVENT WAS ON 29-JUN-2022
     Route: 058
     Dates: start: 20220527
  2. DARATUMUMAB [Suspect]
     Active Substance: DARATUMUMAB
     Indication: Plasma cell myeloma
  3. POMALIDOMIDE [Suspect]
     Active Substance: POMALIDOMIDE
     Indication: Primary amyloidosis
     Dosage: LAST DOSE PRIOR TO EVENT WAS ON 05-JUL-2022
     Route: 048
     Dates: start: 20220630
  4. DEXAMETHASONE [Suspect]
     Active Substance: DEXAMETHASONE
     Indication: Primary amyloidosis
     Dosage: ON DAYS 1,8, 15 AND 22 OF CYCLES 3 TO 6
  5. ACYCLOVIR [Concomitant]
     Active Substance: ACYCLOVIR
     Route: 048
  6. ALLOPURINOL [Concomitant]
     Active Substance: ALLOPURINOL
     Route: 048
  7. APIXABAN [Concomitant]
     Active Substance: APIXABAN
     Route: 048
  8. BUMETANIDE [Concomitant]
     Active Substance: BUMETANIDE
     Dosage: 2MG IN THE MORNING AND 1MG AT 2PM
     Route: 048
  9. CHOLECALCIFEROL [Concomitant]
     Active Substance: CHOLECALCIFEROL
     Route: 048
  10. FLUOROURACIL [Concomitant]
     Active Substance: FLUOROURACIL
     Route: 061
  11. NIACINAMIDE [Concomitant]
     Active Substance: NIACINAMIDE
     Route: 048
  12. OMEPRAZOLE [Concomitant]
     Active Substance: OMEPRAZOLE
     Route: 048
  13. POTASSIUM CHLORIDE [Concomitant]
     Active Substance: POTASSIUM CHLORIDE
     Route: 048
  14. SENOKOT-S [Concomitant]
     Active Substance: DOCUSATE SODIUM\SENNOSIDES
     Route: 048
  15. SILDENAFIL [Concomitant]
     Active Substance: SILDENAFIL
     Route: 048

REACTIONS (1)
  - Parainfluenzae virus infection [Recovered/Resolved]

NARRATIVE: CASE EVENT DATE: 20220706
